FAERS Safety Report 9891635 (Version 1)
Quarter: 2014Q1

REPORT INFORMATION
  Report Type: Spontaneous
  Country: IT (occurrence: IT)
  Receive Date: 20140212
  Receipt Date: 20140212
  Transmission Date: 20141002
  Serious: Yes (Hospitalization)
  Sender: FDA-Public Use
  Company Number: IT-009507513-1402ITA001774

PATIENT
  Age: 47 Year
  Sex: Female

DRUGS (5)
  1. TRILAFON [Suspect]
     Indication: HISTRIONIC PERSONALITY DISORDER
     Dosage: 16 MG, DAILY
     Route: 048
     Dates: start: 201207, end: 20121015
  2. TRILAFON [Suspect]
     Indication: OBSESSIVE-COMPULSIVE DISORDER
  3. TEGRETOL [Concomitant]
     Dosage: 800 MG, QD
     Route: 048
     Dates: start: 201107
  4. EN [Concomitant]
     Dosage: 4 MG, QD
     Route: 048
     Dates: start: 201107
  5. LAROXYL [Concomitant]
     Dosage: 25 MG, QD
     Route: 048
     Dates: start: 201107

REACTIONS (2)
  - Histrionic personality disorder [Recovered/Resolved]
  - Obsessive-compulsive disorder [Recovered/Resolved]
